FAERS Safety Report 5647193-6 (Version None)
Quarter: 2008Q1

REPORT INFORMATION
  Report Type: 
  Country: None (occurrence: None)
  Receive Date: 20080228
  Receipt Date: 20080228
  Transmission Date: 20080703
  Serious: Yes (Hospitalization, Other)
  Sender: FDA-Public Use
  Company Number: None

PATIENT
  Sex: Female

DRUGS (2)
  1. CHANTIX [Suspect]
     Indication: SMOKING CESSATION THERAPY
     Dosage: 0.5MG 1 X 3 DAYS PO  : 0.5MG 2 X 4 DAYS PO
     Route: 048
     Dates: start: 20070825, end: 20070830
  2. CHANTIX [Suspect]
     Indication: SMOKING CESSATION THERAPY
     Dosage: 0.5MG 1 X 3 DAYS PO  : 0.5MG 2 X 4 DAYS PO
     Route: 048
     Dates: start: 20070825, end: 20070830

REACTIONS (5)
  - AGITATION [None]
  - ANXIETY [None]
  - CRYING [None]
  - FEELING ABNORMAL [None]
  - PANIC ATTACK [None]
